FAERS Safety Report 7164469-4 (Version None)
Quarter: 2010Q4

REPORT INFORMATION
  Report Type: 
  Country: None (occurrence: None)
  Receive Date: 20101215
  Receipt Date: 20101204
  Transmission Date: 20110411
  Serious: Yes (Hospitalization)
  Sender: FDA-Public Use
  Company Number: NL-MEDIMMUNE-MEDI-0011945

PATIENT
  Sex: Male
  Weight: 4.395 kg

DRUGS (2)
  1. SYNAGIS [Suspect]
     Route: 030
     Dates: start: 20100907, end: 20101101
  2. SYNAGIS [Suspect]
     Route: 030
     Dates: start: 20101203, end: 20101203

REACTIONS (7)
  - CONSTIPATION [None]
  - COUGH [None]
  - GROWTH RETARDATION [None]
  - HYPOPHAGIA [None]
  - OLIGODIPSIA [None]
  - RHINOVIRUS INFECTION [None]
  - VOMITING [None]
